FAERS Safety Report 13716525 (Version 2)
Quarter: 2017Q3

REPORT INFORMATION
  Report Type: Spontaneous
  Country: ES (occurrence: ES)
  Receive Date: 20170705
  Receipt Date: 20170718
  Transmission Date: 20171127
  Serious: Yes (Death)
  Sender: FDA-Public Use
  Company Number: ES-ACTELION-A-CH2017-156240

PATIENT
  Age: 41 Year
  Sex: Female

DRUGS (1)
  1. VELETRI [Suspect]
     Active Substance: EPOPROSTENOL
     Indication: PULMONARY ARTERIAL HYPERTENSION
     Route: 042

REACTIONS (2)
  - Pulmonary arterial hypertension [Fatal]
  - Disease progression [Fatal]
